FAERS Safety Report 24334860 (Version 2)
Quarter: 2025Q1

REPORT INFORMATION
  Report Type: Spontaneous
  Country: DE (occurrence: DE)
  Receive Date: 20240918
  Receipt Date: 20250331
  Transmission Date: 20250409
  Serious: Yes (Other)
  Sender: MYLAN
  Company Number: DE-SUN PHARMACEUTICAL INDUSTRIES LTD-2024RR-466264

PATIENT
  Age: 36 Year
  Sex: Male

DRUGS (3)
  1. SERTRALINE [Suspect]
     Active Substance: SERTRALINE HYDROCHLORIDE
     Indication: Depression
     Dosage: 50 MILLIGRAM, QD,(DAILY)
     Dates: start: 20240515, end: 20240526
  2. SERTRALINE [Suspect]
     Active Substance: SERTRALINE HYDROCHLORIDE
     Dosage: 25 MILLIGRAM, QD,(DAILY)
     Dates: start: 20240527, end: 20240528
  3. SERTRALINE [Suspect]
     Active Substance: SERTRALINE HYDROCHLORIDE
     Dosage: 12.5 MILLIGRAM, QD
     Dates: start: 20240529, end: 20240531

REACTIONS (17)
  - Suicidal ideation [Unknown]
  - Genital hypoaesthesia [Unknown]
  - Penile size reduced [Unknown]
  - Hypotonia [Unknown]
  - Sperm concentration decreased [Unknown]
  - Loss of libido [Unknown]
  - Sleep disorder [Unknown]
  - Muscle twitching [Unknown]
  - Hypohidrosis [Unknown]
  - Heart rate irregular [Unknown]
  - Memory impairment [Unknown]
  - Sexual dysfunction [Unknown]
  - Fatigue [Unknown]
  - Nausea [Unknown]
  - Erectile dysfunction [Unknown]
  - Dry mouth [Unknown]
  - Hypoaesthesia [Unknown]
